FAERS Safety Report 8075857-6 (Version None)
Quarter: 2012Q1

REPORT INFORMATION
  Report Type: 
  Country: None (occurrence: None)
  Receive Date: 20120127
  Receipt Date: 20120125
  Transmission Date: 20120608
  Serious: No
  Sender: FDA-Public Use
  Company Number: US-PFIZER INC-2012021813

PATIENT
  Sex: Female
  Weight: 56.689 kg

DRUGS (5)
  1. TRAZODONE [Concomitant]
     Indication: INSOMNIA
     Dosage: 50 MG, DAILY
  2. CHANTIX [Suspect]
     Indication: SMOKING CESSATION THERAPY
     Dosage: UNK
     Dates: start: 20080101
  3. REMERON [Concomitant]
     Indication: ANXIETY
  4. CHANTIX [Suspect]
     Dosage: 0.5 MG DAILY
     Dates: start: 20120113
  5. REMERON [Concomitant]
     Indication: DEPRESSION
     Dosage: 45 MG, DAILY

REACTIONS (3)
  - NAUSEA [None]
  - ABNORMAL DREAMS [None]
  - STRESS [None]
